FAERS Safety Report 7525162-9 (Version None)
Quarter: 2011Q2

REPORT INFORMATION
  Report Type: 
  Country: None (occurrence: None)
  Receive Date: 20110606
  Receipt Date: 20090310
  Transmission Date: 20111010
  Serious: Yes (Death)
  Sender: FDA-Public Use
  Company Number: FR-PFIZER INC-2008001532

PATIENT
  Age: 72 Year
  Sex: Male

DRUGS (7)
  1. PRAZEPAM [Suspect]
     Route: 048
  2. ADVIL [Suspect]
     Route: 048
     Dates: start: 20071203, end: 20071205
  3. ACETAMINOPHEN [Suspect]
     Route: 048
     Dates: start: 20071203, end: 20071205
  4. PAROXETINE HCL [Suspect]
  5. AMITRIPTYLINE HCL [Concomitant]
  6. LYRICA [Suspect]
  7. MOXIFLOXACIN HCL [Suspect]
     Route: 048
     Dates: start: 20071203, end: 20071205

REACTIONS (1)
  - SUDDEN DEATH [None]
